FAERS Safety Report 7235181-8 (Version None)
Quarter: 2011Q1

REPORT INFORMATION
  Report Type: 
  Country: None (occurrence: None)
  Receive Date: 20110107
  Receipt Date: 20101222
  Transmission Date: 20110831
  Serious: Yes (Other)
  Sender: FDA-Public Use
  Company Number: ALA_01207_2010

PATIENT
  Sex: Female
  Weight: 55.7924 kg

DRUGS (5)
  1. BENADRYL [Concomitant]
  2. CORTICOSTEROID NOS [Concomitant]
  3. REGLAN [Suspect]
     Indication: GASTROOESOPHAGEAL REFLUX DISEASE
     Dosage: (DF ORAL)
     Route: 048
     Dates: start: 20000101, end: 20020601
  4. EFFEXOR [Concomitant]
  5. TAGAMET /00397401/ [Concomitant]

REACTIONS (10)
  - VIITH NERVE PARALYSIS [None]
  - EXTRAPYRAMIDAL DISORDER [None]
  - ECONOMIC PROBLEM [None]
  - SWELLING FACE [None]
  - TONGUE BITING [None]
  - TARDIVE DYSKINESIA [None]
  - SWOLLEN TONGUE [None]
  - EMOTIONAL DISORDER [None]
  - INJURY [None]
  - DYSARTHRIA [None]
